FAERS Safety Report 8956119 (Version 1)
Quarter: 2012Q4

REPORT INFORMATION
  Report Type: 
  Country: CA (occurrence: CA)
  Receive Date: 20121210
  Receipt Date: 20121210
  Transmission Date: 20130627
  Serious: Yes (Hospitalization)
  Sender: FDA-Public Use
  Company Number: CA-ELI_LILLY_AND_COMPANY-CA201211008817

PATIENT
  Age: 38 Year
  Sex: Male

DRUGS (6)
  1. FORTEO [Suspect]
     Indication: OSTEOPOROSIS
     Dosage: 20 ug, qd
     Route: 058
     Dates: start: 20101222
  2. VENTOLIN                                /SCH/ [Concomitant]
  3. THEOPHYLLINE [Concomitant]
  4. SINGULAIR [Concomitant]
  5. DEXAMETHASONE [Concomitant]
  6. FORMOTEROL W/MOMETASONE [Concomitant]

REACTIONS (1)
  - Sinus operation [Unknown]
